FAERS Safety Report 5165877-3 (Version None)
Quarter: 2006Q4

REPORT INFORMATION
  Report Type: 
  Country: None (occurrence: None)
  Receive Date: 20061128
  Receipt Date: 20061113
  Transmission Date: 20070319
  Serious: Yes (Hospitalization)
  Sender: FDA-Public Use
  Company Number: 2459

PATIENT
  Age: 42 Year
  Sex: Female

DRUGS (1)
  1. ONTAK [Suspect]
     Indication: MYCOSIS FUNGOIDES
     Route: 042
     Dates: end: 20061006

REACTIONS (1)
  - TOXIC EPIDERMAL NECROLYSIS [None]
